FAERS Safety Report 6011481-4 (Version None)
Quarter: 2008Q4

REPORT INFORMATION
  Report Type: 
  Country: None (occurrence: None)
  Receive Date: 20081217
  Receipt Date: 20081217
  Transmission Date: 20090506
  Serious: Yes (Other)
  Sender: FDA-Public Use
  Company Number: None

PATIENT
  Age: 81 Year
  Sex: Male
  Weight: 59.8748 kg

DRUGS (1)
  1. COREG [Suspect]
     Indication: CARDIOVASCULAR DISORDER
     Dosage: 1 TABLET 2 X A DAY PO
     Route: 048
     Dates: start: 20080928, end: 20081117

REACTIONS (4)
  - HAEMORRHAGE [None]
  - INAPPROPRIATE SCHEDULE OF DRUG ADMINISTRATION [None]
  - MELAENA [None]
  - TREATMENT NONCOMPLIANCE [None]
